FAERS Safety Report 4592030-4 (Version None)
Quarter: 2005Q1

REPORT INFORMATION
  Report Type: 
  Country: None (occurrence: None)
  Receive Date: 20050125
  Receipt Date: 20040830
  Transmission Date: 20050727
  Serious: No
  Sender: FDA-Public Use
  Company Number: USA040363166

PATIENT
  Age: 30 Year
  Sex: Male

DRUGS (7)
  1. FORTEO [Suspect]
     Indication: OSTEOPOROSIS
     Dosage: 20 UG DAY
     Dates: start: 20040308
  2. LIPITOR [Concomitant]
  3. ACIPHEX [Concomitant]
  4. CITRALKA (CITRALKA) [Concomitant]
  5. TUMS (CALCIUM CARBONATE) [Concomitant]
  6. VITAMIN D [Concomitant]
  7. CLOZAPINE [Concomitant]

REACTIONS (2)
  - CONSTIPATION [None]
  - INJECTION SITE ERYTHEMA [None]
